FAERS Safety Report 10572878 (Version 1)
Quarter: 2014Q4

REPORT INFORMATION
  Report Type: Spontaneous
  Country: US (occurrence: None)
  Receive Date: 20141107
  Receipt Date: 20141107
  Transmission Date: 20150529
  Serious: No
  Sender: FDA-Public Use
  Company Number: None

PATIENT
  Age: 44 Year
  Sex: Female
  Weight: 104.33 kg

DRUGS (1)
  1. LASTACAFT [Suspect]
     Active Substance: ALCAFTADINE
     Indication: EYE ALLERGY
     Route: 047
     Dates: start: 20141028, end: 20141105

REACTIONS (5)
  - Erythema [None]
  - Skin exfoliation [None]
  - Instillation site erythema [None]
  - Photophobia [None]
  - Vision blurred [None]

NARRATIVE: CASE EVENT DATE: 20141029
